FAERS Safety Report 17860237 (Version 3)
Quarter: 2021Q3

REPORT INFORMATION
  Report Type: Spontaneous
  Country: HK (occurrence: HK)
  Receive Date: 20200604
  Receipt Date: 20210729
  Transmission Date: 20211014
  Serious: Yes (Other)
  Sender: FDA-Public Use
  Company Number: HK-PFIZER INC-2020217759

PATIENT
  Age: 60 Year
  Sex: Female

DRUGS (10)
  1. AMOXYCILLIN [AMOXICILLIN SODIUM;CLAVULANATE POTASSIUM] [Suspect]
     Active Substance: AMOXICILLIN\CLAVULANATE POTASSIUM
     Indication: CORONAVIRUS INFECTION
  2. CLARITHROMYCIN. [Suspect]
     Active Substance: CLARITHROMYCIN
     Indication: CORONAVIRUS INFECTION
  3. RIBAVIRIN. [Suspect]
     Active Substance: RIBAVIRIN
     Indication: CORONAVIRUS INFECTION
     Dosage: 1200 MG, DAILY
     Route: 048
     Dates: start: 2003
  4. HYDROCORTISONE SODIUM SUCCINATE [Suspect]
     Active Substance: HYDROCORTISONE SODIUM SUCCINATE
     Indication: SEVERE ACUTE RESPIRATORY SYNDROME
     Dosage: 10 MG/KG, 1X/DAY(HIGH DOSE)
     Route: 042
     Dates: start: 2003
  5. CLARITHROMYCIN. [Suspect]
     Active Substance: CLARITHROMYCIN
     Indication: SEVERE ACUTE RESPIRATORY SYNDROME
     Dosage: 500 MG, 2X/DAY
     Route: 048
     Dates: start: 2003
  6. AMOXYCILLIN [AMOXICILLIN SODIUM;CLAVULANATE POTASSIUM] [Suspect]
     Active Substance: AMOXICILLIN\CLAVULANATE POTASSIUM
     Indication: ANTIBIOTIC THERAPY
  7. HYDROCORTISONE SODIUM SUCCINATE [Suspect]
     Active Substance: HYDROCORTISONE SODIUM SUCCINATE
     Indication: CORONAVIRUS INFECTION
  8. CLARITHROMYCIN. [Suspect]
     Active Substance: CLARITHROMYCIN
     Indication: ANTIBIOTIC THERAPY
  9. AMOXYCILLIN [AMOXICILLIN SODIUM;CLAVULANATE POTASSIUM] [Suspect]
     Active Substance: AMOXICILLIN\CLAVULANATE POTASSIUM
     Indication: SEVERE ACUTE RESPIRATORY SYNDROME
     Dosage: 1.2 G, 3X/DAY (1.2 G THREE TIMES A DAY)
     Route: 042
     Dates: start: 2003
  10. RIBAVIRIN. [Suspect]
     Active Substance: RIBAVIRIN
     Indication: SEVERE ACUTE RESPIRATORY SYNDROME
     Dosage: 24 MG/KG, 1X/DAY
     Route: 042
     Dates: start: 2003

REACTIONS (5)
  - Hypokalaemia [Unknown]
  - Staphylococcal infection [Recovering/Resolving]
  - Haemolytic anaemia [Unknown]
  - Drug ineffective [Recovering/Resolving]
  - Pseudomonas infection [Recovering/Resolving]

NARRATIVE: CASE EVENT DATE: 2003
